FAERS Safety Report 7682706-4 (Version None)
Quarter: 2011Q3

REPORT INFORMATION
  Report Type: 
  Country: None (occurrence: None)
  Receive Date: 20110815
  Receipt Date: 20110808
  Transmission Date: 20111222
  Serious: Yes (Hospitalization, Other)
  Sender: FDA-Public Use
  Company Number: US-JNJFOC-20110805382

PATIENT
  Sex: Male
  Weight: 114.31 kg

DRUGS (3)
  1. VANTIN [Suspect]
     Indication: PRODUCT USED FOR UNKNOWN INDICATION
     Route: 065
  2. LEVAQUIN [Suspect]
     Indication: PRODUCT USED FOR UNKNOWN INDICATION
     Route: 065
  3. TREANDA [Suspect]
     Indication: LYMPHOMA
     Dosage: OR 221 MG EVERY 21 DAYS
     Route: 042
     Dates: start: 20100405, end: 20100505

REACTIONS (2)
  - BLADDER CANCER [None]
  - CHRONIC GRANULOMATOUS DISEASE [None]
